FAERS Safety Report 6763257-8 (Version None)
Quarter: 2010Q2

REPORT INFORMATION
  Report Type: 
  Country: None (occurrence: None)
  Receive Date: 20100610
  Receipt Date: 20100527
  Transmission Date: 20101027
  Serious: Yes (Hospitalization)
  Sender: FDA-Public Use
  Company Number: US-ASTRAZENECA-2010SE26527

PATIENT
  Age: 11782 Day
  Sex: Female

DRUGS (4)
  1. SEROQUEL [Suspect]
     Dosage: 100MG TK 1 T QAM, 300 MG TK 2 TS HS
     Route: 048
     Dates: start: 20040825
  2. DEPAKOTE ER [Concomitant]
     Dosage: TK 2 TS HS
     Dates: start: 20040825
  3. ABILIFY [Concomitant]
     Dates: start: 20040917
  4. LEXAPRO [Concomitant]
     Dates: start: 20040917

REACTIONS (4)
  - ATELECTASIS [None]
  - DEPRESSION [None]
  - PYREXIA [None]
  - SUICIDE ATTEMPT [None]
